FAERS Safety Report 7971237-X (Version None)
Quarter: 2011Q4

REPORT INFORMATION
  Report Type: 
  Country: None (occurrence: None)
  Receive Date: 20111212
  Receipt Date: 20111206
  Transmission Date: 20120403
  Serious: Yes (Other)
  Sender: FDA-Public Use
  Company Number: US-PFIZER INC-2011298233

PATIENT
  Sex: Female
  Weight: 61.224 kg

DRUGS (14)
  1. XANAX XR [Suspect]
     Indication: BIPOLAR DISORDER
     Dosage: 1 MG, DAILY
  2. XANAX XR [Suspect]
     Dosage: UNK
  3. GABAPENTIN [Suspect]
     Indication: POST-TRAUMATIC STRESS DISORDER
     Dosage: 300 MG, 3X/DAY
     Dates: start: 20111128
  4. GABAPENTIN [Suspect]
     Indication: BIPOLAR DISORDER
  5. ABILIFY [Suspect]
     Dosage: 5 MG, DAILY
  6. ADDERALL 5 [Suspect]
     Dosage: 40 MG, DAILY
     Dates: end: 20111101
  7. POTASSIUM CITRATE [Suspect]
     Dosage: UNK
  8. GABAPENTIN [Suspect]
     Indication: GENERALISED ANXIETY DISORDER
     Dosage: 100 MG, 3X/DAY
     Dates: start: 20110101
  9. POTASSIUM CITRATE [Suspect]
     Indication: NEPHROLITHIASIS
     Dosage: UNK, DAILY
  10. GABAPENTIN [Suspect]
     Indication: DEPRESSION
  11. VITAMIN B-12 [Suspect]
     Dosage: UNK
  12. VITAMIN B-12 [Suspect]
     Indication: AFFECTIVE DISORDER
     Dosage: UNK, WEEKLY
  13. NEOCON [Suspect]
     Indication: CONTRACEPTION
     Dosage: UNK
  14. ABILIFY [Suspect]
     Dosage: UNK

REACTIONS (20)
  - FATIGUE [None]
  - SOMNOLENCE [None]
  - MANIA [None]
  - SPEECH DISORDER [None]
  - MOOD SWINGS [None]
  - AMNESIA [None]
  - EYE DISORDER [None]
  - NIGHTMARE [None]
  - PYREXIA [None]
  - EYE PAIN [None]
  - DISORIENTATION [None]
  - SUICIDAL IDEATION [None]
  - VISUAL IMPAIRMENT [None]
  - HEADACHE [None]
  - ATTENTION DEFICIT/HYPERACTIVITY DISORDER [None]
  - COORDINATION ABNORMAL [None]
  - DYSKINESIA [None]
  - TREMOR [None]
  - FEELING ABNORMAL [None]
  - DIZZINESS [None]
